FAERS Safety Report 4639956-0 (Version None)
Quarter: 2005Q2

REPORT INFORMATION
  Report Type: 
  Country: None (occurrence: None)
  Receive Date: 20050328
  Receipt Date: 20050105
  Transmission Date: 20051028
  Serious: No
  Sender: FDA-Public Use
  Company Number: USA050187556

PATIENT
  Age: 7 Year
  Sex: Male
  Weight: 25 kg

DRUGS (3)
  1. STRATTERA [Suspect]
     Indication: ATTENTION DEFICIT/HYPERACTIVITY DISORDER
     Dosage: 40 MG
     Dates: start: 20041106
  2. SINGULAIR (MONTELUKAST) [Concomitant]
  3. CONCERTA [Concomitant]

REACTIONS (3)
  - AGGRESSION [None]
  - ANGER [None]
  - WEIGHT DECREASED [None]
